FAERS Safety Report 20028525 (Version 2)
Quarter: 2021Q4

REPORT INFORMATION
  Report Type: Report from Study
  Country: US (occurrence: US)
  Receive Date: 20211103
  Receipt Date: 20211117
  Transmission Date: 20220304
  Serious: Yes (Other)
  Sender: FDA-Public Use
  Company Number: US-BAYER-2021A237722

PATIENT
  Age: 77 Year
  Sex: Female
  Weight: 63.039 kg

DRUGS (6)
  1. ADEMPAS [Suspect]
     Active Substance: RIOCIGUAT
     Indication: Pulmonary arterial hypertension
     Dosage: UNK
     Dates: start: 20160630
  2. ADEMPAS [Suspect]
     Active Substance: RIOCIGUAT
     Indication: Pulmonary arterial hypertension
     Dosage: 2.5 MG
     Dates: start: 2020
  3. ADEMPAS [Suspect]
     Active Substance: RIOCIGUAT
     Indication: Pulmonary arterial hypertension
     Dosage: 1 MG, TID
     Route: 048
  4. ADEMPAS [Suspect]
     Active Substance: RIOCIGUAT
     Indication: Pulmonary arterial hypertension
     Dosage: 1 MG, BID
     Route: 048
     Dates: start: 2021
  5. CIPRO [Suspect]
     Active Substance: CIPROFLOXACIN HYDROCHLORIDE
     Indication: Cystitis
     Dosage: UNK
     Dates: start: 202109
  6. ELIQUIS [Concomitant]
     Active Substance: APIXABAN
     Dosage: UNK

REACTIONS (9)
  - Nephrolithiasis [None]
  - Gastric ulcer [None]
  - Oesophageal stenosis [None]
  - Abdominal pain upper [None]
  - Dyspepsia [None]
  - Gastrooesophageal reflux disease [None]
  - Adverse drug reaction [None]
  - Product prescribing issue [None]
  - Epigastric discomfort [None]

NARRATIVE: CASE EVENT DATE: 20200101
